FAERS Safety Report 25739964 (Version 2)
Quarter: 2025Q4

REPORT INFORMATION
  Report Type: Report from Study
  Country: CA (occurrence: CA)
  Receive Date: 20250829
  Receipt Date: 20251208
  Transmission Date: 20260118
  Serious: Yes (Other)
  Sender: TAKEDA
  Company Number: CA-TAKEDA-2025TUS074944

PATIENT
  Sex: Male

DRUGS (4)
  1. VEDOLIZUMAB [Suspect]
     Active Substance: VEDOLIZUMAB
     Indication: Colitis ulcerative
     Dosage: 300 MILLIGRAM
  2. VEDOLIZUMAB [Suspect]
     Active Substance: VEDOLIZUMAB
     Indication: Colitis ulcerative
     Dosage: 108 MILLIGRAM, Q2WEEKS
  3. Cortiment [Concomitant]
     Dosage: UNK
  4. CORTISONE [Concomitant]
     Active Substance: CORTISONE
     Dosage: 40 MILLIGRAM

REACTIONS (4)
  - Haematochezia [Unknown]
  - Frequent bowel movements [Unknown]
  - Abdominal discomfort [Unknown]
  - Stress at work [Unknown]
